FAERS Safety Report 5388184-2 (Version None)
Quarter: 2007Q3

REPORT INFORMATION
  Report Type: 
  Country: None (occurrence: None)
  Receive Date: 20070716
  Receipt Date: 20070109
  Transmission Date: 20080115
  Serious: No
  Sender: FDA-Public Use
  Company Number: A0634628A

PATIENT
  Age: 68 Year
  Sex: Female

DRUGS (2)
  1. NICORETTE [Suspect]
     Dates: start: 20070106, end: 20070106
  2. NICORETTE [Suspect]
     Dates: start: 20070106, end: 20070106

REACTIONS (3)
  - COUGH [None]
  - DYSPNOEA [None]
  - NAUSEA [None]
